FAERS Safety Report 9120931 (Version 2)
Quarter: 2013Q1

REPORT INFORMATION
  Report Type: Spontaneous
  Country: IE (occurrence: IE)
  Receive Date: 20130226
  Receipt Date: 20130328
  Transmission Date: 20140127
  Serious: Yes (Death)
  Sender: FDA-Public Use
  Company Number: IE-GLAXOSMITHKLINE-B0869649A

PATIENT
  Age: 82 Year
  Sex: Male

DRUGS (1)
  1. PAZOPANIB [Suspect]
     Indication: METASTATIC RENAL CELL CARCINOMA
     Route: 065
     Dates: start: 20121217

REACTIONS (2)
  - Hepatic failure [Fatal]
  - Liver function test abnormal [Recovering/Resolving]
